FAERS Safety Report 9596073 (Version 2)
Quarter: 2014Q1

REPORT INFORMATION
  Report Type: Spontaneous
  Country: US (occurrence: US)
  Receive Date: 20131004
  Receipt Date: 20140108
  Transmission Date: 20141002
  Serious: No
  Sender: FDA-Public Use
  Company Number: US-009507513-1309USA013166

PATIENT
  Sex: Female

DRUGS (6)
  1. SAPHRIS [Suspect]
     Indication: BIPOLAR DISORDER
     Dosage: 10 MG, BID, RAPID DISSOLVE
     Route: 060
     Dates: start: 201302, end: 201309
  2. SAPHRIS [Suspect]
     Indication: BORDERLINE PERSONALITY DISORDER
     Dosage: 10 MG, QD; RAPID DISSOLVE
     Route: 060
     Dates: start: 201309
  3. SAPHRIS [Suspect]
     Indication: ANTISOCIAL PERSONALITY DISORDER
  4. SAPHRIS [Suspect]
     Indication: DYSMORPHISM
  5. NORTREL 1/35 [Concomitant]
  6. ZOLOFT [Concomitant]
     Dosage: 150 MG, UNK

REACTIONS (14)
  - Hot flush [Unknown]
  - Nausea [Recovering/Resolving]
  - Headache [Recovering/Resolving]
  - Muscle twitching [Unknown]
  - Weight increased [Unknown]
  - Dizziness postural [Unknown]
  - White blood cell count increased [Unknown]
  - Wound drainage [Unknown]
  - Scab [Unknown]
  - Vision blurred [Unknown]
  - Muscle twitching [Unknown]
  - Balance disorder [Unknown]
  - Product taste abnormal [Unknown]
  - Inappropriate schedule of drug administration [Unknown]
